FAERS Safety Report 8857819 (Version 1)
Quarter: 2012Q4

REPORT INFORMATION
  Report Type: 
  Country: GB (occurrence: GB)
  Receive Date: 20121024
  Receipt Date: 20121024
  Transmission Date: 20130627
  Serious: Yes (Hospitalization)
  Sender: FDA-Public Use
  Company Number: GB-ROCHE-GNE293382

PATIENT
  Age: 22 Year
  Sex: Female
  Weight: 66.87 kg

DRUGS (11)
  1. XOLAIR [Suspect]
     Indication: ASTHMA
     Route: 058
  2. XOLAIR [Suspect]
     Route: 065
     Dates: start: 20110203, end: 20120205
  3. ADCAL-D3 [Concomitant]
     Route: 065
     Dates: end: 20120205
  4. DIAZEPAM [Concomitant]
     Route: 065
     Dates: end: 20120205
  5. LORATADINE [Concomitant]
     Route: 065
     Dates: end: 20120205
  6. MONTELUKAST [Concomitant]
     Route: 065
     Dates: end: 20120308
  7. SYMBICORT [Concomitant]
  8. PREDNISONE [Concomitant]
     Route: 065
     Dates: end: 20120205
  9. SALBUTAMOL [Concomitant]
  10. FLUTICASONE [Concomitant]
     Route: 065
     Dates: end: 20120205
  11. IPRATROPIUM + SALBUTAMOL [Concomitant]
     Route: 065
     Dates: start: 20120205

REACTIONS (3)
  - Asthma [Recovered/Resolved]
  - Dyspnoea [Recovered/Resolved]
  - Drug ineffective [Unknown]
